FAERS Safety Report 5224262-6 (Version None)
Quarter: 2007Q1

REPORT INFORMATION
  Report Type: 
  Country: None (occurrence: None)
  Receive Date: 20070126
  Receipt Date: 20070110
  Transmission Date: 20070707
  Serious: Yes (Death)
  Sender: FDA-Public Use
  Company Number: VNL_0387_2007

PATIENT
  Sex: Male

DRUGS (2)
  1. APO-GO [Suspect]
     Dosage: DF CON SC
     Route: 058
  2. APO-GO [Suspect]
     Dosage: DF UNK

REACTIONS (1)
  - DEATH [None]
